FAERS Safety Report 18152239 (Version 1)
Quarter: 2020Q3

REPORT INFORMATION
  Report Type: Spontaneous
  Country: DE (occurrence: DE)
  Receive Date: 20200814
  Receipt Date: 20200814
  Transmission Date: 20201103
  Serious: Yes (Other)
  Sender: FDA-Public Use
  Company Number: DE-BAYER-2020-167101

PATIENT
  Age: 27 Year
  Sex: Female
  Weight: 71 kg

DRUGS (1)
  1. KYLEENA [Suspect]
     Active Substance: LEVONORGESTREL
     Dosage: 17.5 ?G PER DAY CONTINUOUSLY, REMOVED IN AUG?2020
     Route: 015
     Dates: start: 201808

REACTIONS (6)
  - Multiple allergies [Not Recovered/Not Resolved]
  - Dizziness [Recovering/Resolving]
  - Cellulitis staphylococcal [Not Recovered/Not Resolved]
  - Panic attack [Recovering/Resolving]
  - Paraesthesia [Not Recovered/Not Resolved]
  - Weight increased [Not Recovered/Not Resolved]

NARRATIVE: CASE EVENT DATE: 201808
